FAERS Safety Report 12220786 (Version 1)
Quarter: 2016Q1

REPORT INFORMATION
  Report Type: Report from Study
  Country: US (occurrence: US)
  Receive Date: 20160330
  Receipt Date: 20160330
  Transmission Date: 20160526
  Serious: Yes (Other)
  Sender: FDA-Public Use
  Company Number: PHEH2016US007578

PATIENT
  Age: 50 Year
  Sex: Female

DRUGS (1)
  1. EXELON PATCH [Suspect]
     Active Substance: RIVASTIGMINE
     Indication: PRODUCT USED FOR UNKNOWN INDICATION
     Dosage: 1.56 MG/KG (PATCH), QD
     Route: 062
     Dates: start: 20150228, end: 20160229

REACTIONS (1)
  - Application site rash [Not Recovered/Not Resolved]

NARRATIVE: CASE EVENT DATE: 20160328
